FAERS Safety Report 21683841 (Version 1)
Quarter: 2022Q4

REPORT INFORMATION
  Report Type: Spontaneous
  Country: NO (occurrence: NO)
  Receive Date: 20221205
  Receipt Date: 20221205
  Transmission Date: 20230113
  Serious: Yes (Other)
  Sender: FDA-Public Use
  Company Number: NO-FreseniusKabi-FK202217376

PATIENT
  Sex: Female

DRUGS (8)
  1. SODIUM CHLORIDE [Suspect]
     Active Substance: SODIUM CHLORIDE
     Indication: Abdominal cavity drainage
  2. DEXTROSE [Suspect]
     Active Substance: DEXTROSE
     Indication: Hypernatraemia
     Route: 040
  3. DEXTROSE [Suspect]
     Active Substance: DEXTROSE
     Dosage: 8.6 ML/KG/HOUR
  4. SODIUM CHLORIDE [Suspect]
     Active Substance: SODIUM CHLORIDE
     Indication: Abdominal cavity drainage
     Dosage: 2L FOR 10 MINUTES
  5. ALBENDAZOLE [Concomitant]
     Active Substance: ALBENDAZOLE
     Indication: Echinococciasis
     Dosage: MORNING AND EVENING
  6. PRAZIQUANTEL [Concomitant]
     Active Substance: PRAZIQUANTEL
     Indication: Prophylaxis
  7. FUROSEMIDE [Concomitant]
     Active Substance: FUROSEMIDE
     Indication: Product used for unknown indication
  8. FUROSEMIDE [Concomitant]
     Active Substance: FUROSEMIDE

REACTIONS (2)
  - Hypernatraemia [Recovered/Resolved]
  - Hyperglycaemia [Recovered/Resolved]
